FAERS Safety Report 18561851 (Version 1)
Quarter: 2020Q4

REPORT INFORMATION
  Report Type: Other
  Country: US (occurrence: US)
  Receive Date: 20201201
  Receipt Date: 20201201
  Transmission Date: 20210114
  Serious: Yes (Other)
  Sender: FDA-Public Use
  Company Number: US-ROCHE-2718188

PATIENT
  Age: 59 Year
  Sex: Female
  Weight: 106.24 kg

DRUGS (13)
  1. OCREVUS [Suspect]
     Active Substance: OCRELIZUMAB
     Indication: RELAPSING MULTIPLE SCLEROSIS
  2. OCREVUS [Suspect]
     Active Substance: OCRELIZUMAB
     Indication: RELAPSING-REMITTING MULTIPLE SCLEROSIS
     Dosage: ONGOING: YES
     Route: 042
     Dates: start: 202005
  3. GABAPENTIN. [Concomitant]
     Active Substance: GABAPENTIN
     Indication: PAIN
     Dosage: 1 TABLET AT NOON AND 2 TABLET IN THE EVENING ;ONGOING: YES
     Route: 048
  4. ALBUTEROL SULFATE. [Concomitant]
     Active Substance: ALBUTEROL SULFATE
     Indication: ASTHMA
     Dosage: AS NEEDED 2.5/MG/3ML 0.83% NEBULIZER ;ONGOING: YES
  5. CILOSTAZOL. [Concomitant]
     Active Substance: CILOSTAZOL
     Dosage: ONGOING: YES
     Route: 048
  6. OMEPRAZOLE. [Concomitant]
     Active Substance: OMEPRAZOLE
     Indication: GASTROOESOPHAGEAL REFLUX DISEASE
     Dosage: ONGOING: YES
     Route: 048
  7. PRAMIPEXOLE DIHYDROCHLORIDE. [Concomitant]
     Active Substance: PRAMIPEXOLE DIHYDROCHLORIDE
     Indication: RESTLESS LEGS SYNDROME
     Route: 048
  8. CHLORHEXIDINE GLUCONATE. [Concomitant]
     Active Substance: CHLORHEXIDINE GLUCONATE
     Indication: BLISTER
  9. TRIAMCINOLONE ACETONIDE. [Concomitant]
     Active Substance: TRIAMCINOLONE ACETONIDE
     Dosage: 2 TIMES DAILY AS NEEDED ;ONGOING: YES
  10. VENTOLIN HFA [Concomitant]
     Active Substance: ALBUTEROL SULFATE
     Indication: ASTHMA
     Dosage: 2 PUFFS EVERY 4 HOURS AS NEEDED ;ONGOING: YES
  11. CHLORHEXIDINE GLUCONATE. [Concomitant]
     Active Substance: CHLORHEXIDINE GLUCONATE
     Indication: ULCER
     Dosage: ONGOING: YES
  12. BUPROPION HCL ER [Concomitant]
     Active Substance: BUPROPION HYDROCHLORIDE
     Indication: DEPRESSION
     Dosage: ONGOING : YES
     Route: 048
  13. VALSARTAN AND HYDROCHLOROTHIAZIDE [Concomitant]
     Active Substance: HYDROCHLOROTHIAZIDE\VALSARTAN
     Indication: HYPERTENSION
     Dosage: 150-12 MG HALF TAB DAILY ;ONGOING: YES
     Route: 048
     Dates: start: 20200922

REACTIONS (3)
  - Glucose tolerance impaired [Not Recovered/Not Resolved]
  - Scar [Unknown]
  - Arthritis infective [Not Recovered/Not Resolved]

NARRATIVE: CASE EVENT DATE: 20201104
